FAERS Safety Report 16335834 (Version 1)
Quarter: 2019Q2

REPORT INFORMATION
  Report Type: Spontaneous
  Country: CN (occurrence: CN)
  Receive Date: 20190521
  Receipt Date: 20190521
  Transmission Date: 20190711
  Serious: Yes (Death, Life-Threatening, Hospitalization, Other)
  Sender: FDA-Public Use
  Company Number: CN-ACCORD-128245

PATIENT
  Age: 6 Year
  Sex: Male

DRUGS (9)
  1. MIDAZOLAM [Suspect]
     Active Substance: MIDAZOLAM HYDROCHLORIDE
     Indication: GENERAL ANAESTHESIA
  2. CISATRACURIUM/CISATRACURIUM BESILATE [Suspect]
     Active Substance: CISATRACURIUM BESYLATE
     Indication: INDUCTION OF ANAESTHESIA
  3. PROPOFOL. [Suspect]
     Active Substance: PROPOFOL
     Indication: INDUCTION OF ANAESTHESIA
  4. REMIFENTANIL/REMIFENTANIL HYDROCHLORIDE [Suspect]
     Active Substance: REMIFENTANIL HYDROCHLORIDE
     Indication: MAINTENANCE OF ANAESTHESIA
  5. PROPOFOL. [Suspect]
     Active Substance: PROPOFOL
     Indication: MAINTENANCE OF ANAESTHESIA
  6. ATROPINE. [Concomitant]
     Active Substance: ATROPINE
  7. SEVOFLURANE. [Suspect]
     Active Substance: SEVOFLURANE
     Indication: MAINTENANCE OF ANAESTHESIA
     Dosage: 0.4 MAC
  8. FENTANYL. [Suspect]
     Active Substance: FENTANYL
     Indication: INDUCTION OF ANAESTHESIA
  9. METHYLPREDNISOLONE. [Concomitant]
     Active Substance: METHYLPREDNISOLONE

REACTIONS (2)
  - Pneumothorax [Unknown]
  - Respiratory disorder [Fatal]
